FAERS Safety Report 8150655-3 (Version None)
Quarter: 2012Q1

REPORT INFORMATION
  Report Type: 
  Country: None (occurrence: None)
  Receive Date: 20120220
  Receipt Date: 20120212
  Transmission Date: 20120608
  Serious: Yes (Other)
  Sender: FDA-Public Use
  Company Number: PHHY2012NL012074

PATIENT
  Sex: Female

DRUGS (3)
  1. ZOMETA [Suspect]
     Dosage: 4 MG/ 5 ML ONCE PER 56 DAYS
     Dates: start: 20111031
  2. ZOMETA [Suspect]
     Dosage: 4 MG/ 5 ML ONCE PER 56 DAYS
     Dates: end: 20111219
  3. ZOMETA [Suspect]
     Indication: BREAST CANCER METASTATIC
     Dosage: 4 MG/ 5 ML ONCE PER 56 DAYS
     Dates: start: 20090116

REACTIONS (1)
  - TERMINAL STATE [None]
